FAERS Safety Report 20355589 (Version 8)
Quarter: 2022Q1

REPORT INFORMATION
  Report Type: Report from Study
  Country: US (occurrence: US)
  Receive Date: 20220120
  Receipt Date: 20220331
  Transmission Date: 20220423
  Serious: Yes (Other)
  Sender: FDA-Public Use
  Company Number: US-JNJFOC-20220125178

PATIENT
  Age: 77 Year
  Sex: Female
  Weight: 64.5 kg

DRUGS (8)
  1. MACITENTAN [Suspect]
     Active Substance: MACITENTAN
     Indication: Pulmonary arterial hypertension
     Route: 048
     Dates: end: 20220111
  2. UPTRAVI [Suspect]
     Active Substance: SELEXIPAG
     Indication: Pulmonary arterial hypertension
     Route: 048
  3. UPTRAVI [Suspect]
     Active Substance: SELEXIPAG
     Route: 048
  4. UPTRAVI [Suspect]
     Active Substance: SELEXIPAG
     Route: 048
     Dates: start: 20220219
  5. UPTRAVI [Suspect]
     Active Substance: SELEXIPAG
     Route: 048
     Dates: start: 20220220
  6. UPTRAVI [Suspect]
     Active Substance: SELEXIPAG
     Route: 048
  7. SILDENAFIL CITRATE [Concomitant]
     Active Substance: SILDENAFIL CITRATE
  8. ELIQUIS [Concomitant]
     Active Substance: APIXABAN

REACTIONS (12)
  - Renal impairment [Recovering/Resolving]
  - Adverse drug reaction [Unknown]
  - Haemorrhoidal haemorrhage [Unknown]
  - Fluid retention [Recovering/Resolving]
  - Rash [Unknown]
  - Diarrhoea [Recovering/Resolving]
  - Headache [Recovering/Resolving]
  - Nausea [Recovering/Resolving]
  - Dyspnoea [Recovering/Resolving]
  - Dizziness [Unknown]
  - Anaemia [Recovering/Resolving]
  - Decreased appetite [Unknown]
